FAERS Safety Report 23288463 (Version 1)
Quarter: 2023Q4

REPORT INFORMATION
  Report Type: Spontaneous
  Country: US (occurrence: US)
  Receive Date: 20231212
  Receipt Date: 20231212
  Transmission Date: 20240110
  Serious: Yes (Other)
  Sender: FDA-Public Use
  Company Number: US-CMP PHARMA-2023CMP00077

PATIENT
  Age: 72 Year
  Sex: Male

DRUGS (6)
  1. TADALAFIL [Suspect]
     Active Substance: TADALAFIL
     Indication: Erectile dysfunction
     Dosage: SINGLE AGENT
  2. TADALAFIL [Suspect]
     Active Substance: TADALAFIL
     Dosage: WITH VARDENAFIL
  3. TADALAFIL [Suspect]
     Active Substance: TADALAFIL
     Dosage: SINGLE AGENT
  4. VARDENAFIL [Suspect]
     Active Substance: VARDENAFIL HYDROCHLORIDE
     Indication: Erectile dysfunction
     Dosage: SINGLE AGENT
  5. VARDENAFIL [Suspect]
     Active Substance: VARDENAFIL HYDROCHLORIDE
     Dosage: WITH TADALAFIL
  6. VARDENAFIL [Suspect]
     Active Substance: VARDENAFIL HYDROCHLORIDE
     Dosage: RESUMED VARDENAFIL 3 CONSECUTIVE DAYS MONTHLY

REACTIONS (1)
  - Hepatitis cholestatic [Recovered/Resolved]
